FAERS Safety Report 5978819-5 (Version None)
Quarter: 2008Q4

REPORT INFORMATION
  Report Type: 
  Country: None (occurrence: None)
  Receive Date: 20081204
  Receipt Date: 20081125
  Transmission Date: 20090506
  Serious: Yes (Other)
  Sender: FDA-Public Use
  Company Number: PHHY2008BR30010

PATIENT
  Age: 56 Year

DRUGS (9)
  1. LESCOL XL [Suspect]
     Dosage: 80 MG, QD
     Dates: start: 20081119
  2. RASILEZ [Concomitant]
     Indication: HYPERTENSION
     Dosage: 300 MG, BID
     Route: 048
     Dates: start: 20080901
  3. DIMETICONE [Concomitant]
     Dosage: 30 MG, UNK
  4. TICLID [Concomitant]
     Dosage: 250 MG, UNK
  5. CARDIZEM CD [Concomitant]
     Indication: CARDIAC DISORDER
     Dosage: 240 MG, QD
     Route: 048
     Dates: start: 20080901
  6. SYNTHROID [Concomitant]
     Indication: PHARYNGEAL OEDEMA
     Dosage: 75 UG, QD
     Route: 048
     Dates: start: 20030101
  7. SIMVASTATIN [Concomitant]
     Dosage: 20 MG, UNK
     Route: 048
  8. MUVINOR (CALCIUM PLYCARBOPHIL) [Concomitant]
     Indication: GASTROINTESTINAL DISORDER
     Dosage: 2000 MG, QD
     Dates: start: 20080501
  9. SIMECO PLUS [Concomitant]
     Dosage: UNK
     Route: 048

REACTIONS (11)
  - ABDOMINAL PAIN [None]
  - ASTHENIA [None]
  - BLOOD PRESSURE DECREASED [None]
  - BLOOD PRESSURE INCREASED [None]
  - COLD SWEAT [None]
  - FREQUENT BOWEL MOVEMENTS [None]
  - INSOMNIA [None]
  - NAUSEA [None]
  - PALLOR [None]
  - TREMOR [None]
  - VOMITING [None]
